FAERS Safety Report 12756684 (Version 1)
Quarter: 2016Q3

REPORT INFORMATION
  Report Type: Spontaneous
  Country: US (occurrence: US)
  Receive Date: 20160917
  Receipt Date: 20160917
  Transmission Date: 20161109
  Serious: No
  Sender: FDA-Public Use
  Company Number: US-B.I. PHARMACEUTICALS,INC./RIDGEFIELD-2016-BI-58494BP

PATIENT
  Age: 82 Year
  Sex: Female

DRUGS (4)
  1. PRADAXA [Suspect]
     Active Substance: DABIGATRAN ETEXILATE MESYLATE
     Indication: PULMONARY EMBOLISM
     Dosage: 300 MG
     Route: 048
     Dates: start: 20160803
  2. LISINOPRIL / HYDROCHLOROTHIAZIDE [Concomitant]
     Indication: PERIPHERAL SWELLING
     Dosage: DOSE PER APPLICATION: 20 MG/ 25 MG; DAILY DOSE: 20 MG / 25 MG
     Route: 048
     Dates: start: 20160728
  3. LISINOPRIL / HYDROCHLOROTHIAZIDE [Concomitant]
     Indication: HYPERTENSION
  4. TOPROL XL [Concomitant]
     Active Substance: METOPROLOL SUCCINATE
     Indication: HYPERTENSION
     Dosage: 25 MG
     Route: 048
     Dates: start: 2015

REACTIONS (13)
  - Pain in extremity [Not Recovered/Not Resolved]
  - Burning sensation [Not Recovered/Not Resolved]
  - Back pain [Not Recovered/Not Resolved]
  - Insomnia [Not Recovered/Not Resolved]
  - Anorectal discomfort [Not Recovered/Not Resolved]
  - Pruritus [Not Recovered/Not Resolved]
  - Abdominal pain upper [Not Recovered/Not Resolved]
  - Headache [Not Recovered/Not Resolved]
  - Nausea [Not Recovered/Not Resolved]
  - Asthenia [Not Recovered/Not Resolved]
  - Migraine [Recovered/Resolved]
  - Muscle spasms [Recovered/Resolved]
  - Abdominal discomfort [Not Recovered/Not Resolved]

NARRATIVE: CASE EVENT DATE: 201608
